FAERS Safety Report 14879732 (Version 1)
Quarter: 2018Q2

REPORT INFORMATION
  Report Type: Report from Study
  Country: US (occurrence: US)
  Receive Date: 20180511
  Receipt Date: 20180511
  Transmission Date: 20180711
  Serious: Yes (Other)
  Sender: FDA-Public Use
  Company Number: US-JNJFOC-20180329305

PATIENT
  Age: 72 Year
  Sex: Female

DRUGS (1)
  1. IMBRUVICA [Suspect]
     Active Substance: IBRUTINIB
     Indication: CHRONIC LYMPHOCYTIC LEUKAEMIA
     Route: 048

REACTIONS (5)
  - Fall [Not Recovered/Not Resolved]
  - Dyspnoea [Unknown]
  - Eye swelling [Not Recovered/Not Resolved]
  - Hypotension [Unknown]
  - Infusion site infection [Unknown]

NARRATIVE: CASE EVENT DATE: 201801
